FAERS Safety Report 9619743 (Version 1)
Quarter: 2013Q4

REPORT INFORMATION
  Report Type: Spontaneous
  Country: BR (occurrence: BR)
  Receive Date: 20131014
  Receipt Date: 20131014
  Transmission Date: 20140711
  Serious: Yes (Death, Hospitalization)
  Sender: FDA-Public Use
  Company Number: BR-GLAXOSMITHKLINE-A1044981A

PATIENT
  Age: 13 Year
  Sex: Female

DRUGS (2)
  1. LAMICTAL [Suspect]
     Indication: GRAND MAL CONVULSION
     Route: 048
     Dates: start: 201308, end: 201308
  2. VALPROIC ACID [Concomitant]
     Indication: GRAND MAL CONVULSION
     Route: 048

REACTIONS (5)
  - Death [Fatal]
  - Rash erythematous [Recovered/Resolved]
  - Pyrexia [Recovered/Resolved]
  - Mouth ulceration [Recovered/Resolved]
  - Stevens-Johnson syndrome [Recovered/Resolved]
